FAERS Safety Report 8568413-4 (Version None)
Quarter: 2012Q3

REPORT INFORMATION
  Report Type: 
  Country: None (occurrence: None)
  Receive Date: 20120803
  Receipt Date: 20120130
  Transmission Date: 20120928
  Serious: No
  Sender: FDA-Public Use
  Company Number: US-ABBOTT-12P-163-0899019-00

PATIENT
  Sex: Female
  Weight: 78.088 kg

DRUGS (9)
  1. ASPIRIN [Concomitant]
     Indication: PRODUCT USED FOR UNKNOWN INDICATION
  2. CALCIUM W/VITAMIN D [Concomitant]
     Indication: PRODUCT USED FOR UNKNOWN INDICATION
     Dosage: 1200 + 1000 IU
  3. ATENOLOL [Concomitant]
     Indication: PRODUCT USED FOR UNKNOWN INDICATION
     Dosage: 50MG-75MG
  4. CYCLOBENZAPRINE [Concomitant]
     Indication: PRODUCT USED FOR UNKNOWN INDICATION
  5. NIASPAN [Suspect]
     Indication: BLOOD CHOLESTEROL INCREASED
     Dosage: TAKEN AT BEDTIME
     Route: 048
  6. LISINOPRIL AND HYDROCHLOROTHIAZIDE [Concomitant]
     Indication: PRODUCT USED FOR UNKNOWN INDICATION
  7. WOMEN'S MULTIVITAMIN [Concomitant]
     Indication: PRODUCT USED FOR UNKNOWN INDICATION
  8. LORTAB [Concomitant]
     Indication: PAIN
  9. NIASPAN [Suspect]
     Indication: DRUG INTOLERANCE

REACTIONS (10)
  - PRURITUS [None]
  - NAUSEA [None]
  - HEART RATE INCREASED [None]
  - GAIT DISTURBANCE [None]
  - ERYTHEMA [None]
  - FLUSHING [None]
  - FEELING HOT [None]
  - OEDEMA PERIPHERAL [None]
  - BURNING SENSATION [None]
  - CARDIAC FLUTTER [None]
